FAERS Safety Report 24612914 (Version 1)
Quarter: 2024Q4

REPORT INFORMATION
  Report Type: Spontaneous
  Country: US (occurrence: None)
  Receive Date: 20241112
  Receipt Date: 20241112
  Transmission Date: 20250114
  Serious: Yes (Hospitalization)
  Sender: Public
  Company Number: None

PATIENT
  Age: 52 Year
  Sex: Female

DRUGS (15)
  1. TADALAFIL [Suspect]
     Active Substance: TADALAFIL
     Indication: Pulmonary arterial hypertension
     Dosage: 20MG QD ORAL
     Route: 048
     Dates: start: 20210712, end: 20241102
  2. OPSUMIT [Suspect]
     Active Substance: MACITENTAN
  3. ROXANOL [Concomitant]
     Active Substance: MORPHINE SULFATE
  4. HALDOL [Concomitant]
     Active Substance: HALOPERIDOL
  5. LORAZEPAM [Concomitant]
     Active Substance: LORAZEPAM
  6. QUETIAPINE [Concomitant]
     Active Substance: QUETIAPINE
  7. BISACODYL [Concomitant]
     Active Substance: BISACODYL
  8. HYOSCYAMINE [Concomitant]
     Active Substance: HYOSCYAMINE
  9. ZOFRAN [Concomitant]
     Active Substance: ONDANSETRON HYDROCHLORIDE
  10. TYLENOL [Concomitant]
     Active Substance: ACETAMINOPHEN
  11. OXYGEN [Concomitant]
     Active Substance: OXYGEN
  12. MIDODRINE [Concomitant]
     Active Substance: MIDODRINE
  13. POTASSIUM CHLORIDE [Concomitant]
     Active Substance: POTASSIUM CHLORIDE
  14. SPIRONOLACTONE [Concomitant]
     Active Substance: SPIRONOLACTONE
  15. LACTULOSE [Concomitant]
     Active Substance: LACTULOSE

REACTIONS (6)
  - Cellulitis [None]
  - Bacteraemia [None]
  - Hypervolaemia [None]
  - Right ventricular failure [None]
  - Nausea [None]
  - Vomiting [None]

NARRATIVE: CASE EVENT DATE: 20241021
